FAERS Safety Report 4915187-1 (Version None)
Quarter: 2006Q1

REPORT INFORMATION
  Report Type: 
  Country: None (occurrence: None)
  Receive Date: 20060216
  Receipt Date: 20060216
  Transmission Date: 20060701
  Serious: Yes (Hospitalization)
  Sender: FDA-Public Use
  Company Number: None

PATIENT
  Sex: Female
  Weight: 91.173 kg

DRUGS (5)
  1. PENICILLIN [Suspect]
     Indication: TOOTH INFECTION
     Dosage: UNKNOWN, PO  PRIOR TO ADMISSION
     Route: 048
  2. ATENOLOL [Concomitant]
  3. CLONIDINE [Concomitant]
  4. VICODIN [Concomitant]
  5. PERCOGESIC [Concomitant]

REACTIONS (1)
  - SWELLING FACE [None]
